FAERS Safety Report 25191385 (Version 1)
Quarter: 2025Q2

REPORT INFORMATION
  Report Type: Spontaneous
  Country: FR (occurrence: FR)
  Receive Date: 20250411
  Receipt Date: 20250411
  Transmission Date: 20250717
  Serious: Yes (Hospitalization, Other)
  Sender: AUROBINDO
  Company Number: FR-AFSSAPS-PC2025000255

PATIENT
  Age: 42 Year
  Sex: Male
  Weight: 85 kg

DRUGS (2)
  1. LIDOCAINE [Suspect]
     Active Substance: LIDOCAINE
     Indication: Pain
     Route: 042
     Dates: start: 20250318, end: 20250320
  2. KETAMINE [Suspect]
     Active Substance: KETAMINE
     Indication: Pain
     Route: 042
     Dates: start: 20250320, end: 20250320

REACTIONS (3)
  - Delirium [Recovered/Resolved]
  - Agitation [Recovered/Resolved]
  - Aggression [Recovered/Resolved]

NARRATIVE: CASE EVENT DATE: 20250320
